FAERS Safety Report 21327302 (Version 1)
Quarter: 2022Q3

REPORT INFORMATION
  Report Type: Report from Study
  Country: CN (occurrence: CN)
  Receive Date: 20220913
  Receipt Date: 20220913
  Transmission Date: 20221026
  Serious: Yes (Death, Hospitalization)
  Sender: FDA-Public Use
  Company Number: CN-ADC THERAPEUTICS SA-ADC-2022-000185

PATIENT
  Age: 64 Year
  Sex: Female

DRUGS (4)
  1. LONCASTUXIMAB TESIRINE [Suspect]
     Active Substance: LONCASTUXIMAB TESIRINE
     Indication: Diffuse large B-cell lymphoma refractory
     Dosage: 8.0 MILLIGRAM, Q3WK
     Route: 042
     Dates: start: 20220308, end: 20220329
  2. LONCASTUXIMAB TESIRINE [Suspect]
     Active Substance: LONCASTUXIMAB TESIRINE
     Dosage: UNK UNK, Q3WK
     Route: 042
     Dates: start: 20220425, end: 20220425
  3. LONCASTUXIMAB TESIRINE [Suspect]
     Active Substance: LONCASTUXIMAB TESIRINE
     Dosage: UNK UNK, Q3WK
     Route: 042
     Dates: start: 20220601, end: 20220601
  4. LONCASTUXIMAB TESIRINE [Suspect]
     Active Substance: LONCASTUXIMAB TESIRINE
     Dosage: 37.5 MICROGRAM/KILOGRAM, Q3WK
     Route: 042
     Dates: start: 20220705, end: 20220728

REACTIONS (1)
  - Septic shock [Fatal]

NARRATIVE: CASE EVENT DATE: 20220905
